FAERS Safety Report 9167084 (Version 1)
Quarter: 2013Q1

REPORT INFORMATION
  Report Type: Spontaneous
  Country: US (occurrence: None)
  Receive Date: 20130314
  Receipt Date: 20130314
  Transmission Date: 20140127
  Serious: Yes (Life-Threatening, Hospitalization, Disabling)
  Sender: FDA-Public Use
  Company Number: None

PATIENT
  Age: 90 Year
  Sex: Male
  Weight: 55 kg

DRUGS (9)
  1. ERBITUX [Suspect]
     Indication: SQUAMOUS CELL CARCINOMA OF SKIN
     Dates: start: 20130227
  2. CRANBERRY EXTRACT ORAL [Concomitant]
  3. TUMS [Concomitant]
  4. MIRALAX [Concomitant]
  5. ZOCOR [Concomitant]
  6. ASPIRIN [Concomitant]
  7. PEPCID [Concomitant]
  8. COLACE [Concomitant]
  9. MULTIVITAMINS [Concomitant]

REACTIONS (7)
  - Chills [None]
  - Chills [None]
  - Vomiting [None]
  - Fall [None]
  - Pulmonary embolism [None]
  - Haemodynamic instability [None]
  - Cerebral infarction [None]
